FAERS Safety Report 18434309 (Version 1)
Quarter: 2020Q4

REPORT INFORMATION
  Report Type: Spontaneous
  Country: US (occurrence: US)
  Receive Date: 20201028
  Receipt Date: 20201028
  Transmission Date: 20210114
  Serious: Yes (Life-Threatening, Hospitalization)
  Sender: FDA-Public Use
  Company Number: US-EMCURE PHARMACEUTICALS LTD-2020-EPL-001655

PATIENT
  Age: 84 Year
  Sex: Male

DRUGS (3)
  1. LABETALOL [Concomitant]
     Active Substance: LABETALOL\LABETALOL HYDROCHLORIDE
     Indication: MEAN ARTERIAL PRESSURE
     Dosage: 0.5 MILLIGRAM PER MIN (LABETALOL WAS OFF FOR 2 HOURS PRIOR TO NIMODIPINE ADMINISTRATION)
  2. NIMODIPINE. [Suspect]
     Active Substance: NIMODIPINE
     Indication: SUBARACHNOID HAEMORRHAGE
     Dosage: 60 MILLIGRAM
  3. NIMODIPINE. [Suspect]
     Active Substance: NIMODIPINE
     Indication: ANEURYSM RUPTURED

REACTIONS (1)
  - Vasoplegia syndrome [Recovered/Resolved]
